FAERS Safety Report 18022520 (Version 4)
Quarter: 2021Q3

REPORT INFORMATION
  Report Type: Report from Study
  Country: US (occurrence: US)
  Receive Date: 20200714
  Receipt Date: 20210816
  Transmission Date: 20211014
  Serious: No
  Sender: FDA-Public Use
  Company Number: NVSC2020US193320

PATIENT
  Age: 8 Year
  Sex: Male
  Weight: 28 kg

DRUGS (2)
  1. ILARIS [Suspect]
     Active Substance: CANAKINUMAB
     Indication: STILL^S DISEASE
     Dosage: 120 MG, QMO
     Route: 058
     Dates: start: 20200619
  2. ILARIS [Suspect]
     Active Substance: CANAKINUMAB
     Dosage: 110 MG, Q4W (EVERY 4 WEEKS)
     Route: 058

REACTIONS (3)
  - Epistaxis [Unknown]
  - Rash [Recovering/Resolving]
  - Back pain [Unknown]

NARRATIVE: CASE EVENT DATE: 20210730
